FAERS Safety Report 23510406 (Version 2)
Quarter: 2024Q1

REPORT INFORMATION
  Report Type: Other
  Country: BD (occurrence: None)
  Receive Date: 20240211
  Receipt Date: 20240322
  Transmission Date: 20240409
  Serious: Yes (Other)
  Sender: FDA-Public Use
  Company Number: BD-ROCHE-3506844

PATIENT

DRUGS (1)
  1. AVASTIN [Suspect]
     Active Substance: BEVACIZUMAB
     Indication: Product used for unknown indication
     Route: 065

REACTIONS (5)
  - Ill-defined disorder [Unknown]
  - Endophthalmitis [Unknown]
  - Intraocular pressure increased [Unknown]
  - Eye injury [Unknown]
  - Conjunctival haemorrhage [Unknown]
